FAERS Safety Report 10153164 (Version 2)
Quarter: 2014Q2

REPORT INFORMATION
  Report Type: Report from Study
  Country: GB (occurrence: GB)
  Receive Date: 20140505
  Receipt Date: 20140602
  Transmission Date: 20141212
  Serious: Yes (Other)
  Sender: FDA-Public Use
  Company Number: GB-JNJFOC-20140418079

PATIENT
  Age: 53 Year
  Sex: Female
  Weight: 70 kg

DRUGS (10)
  1. STELARA [Suspect]
     Indication: PSORIASIS
     Route: 058
     Dates: start: 20110218
  2. AZITHROMYCIN [Concomitant]
     Route: 065
     Dates: start: 20100128
  3. MICARDIS [Concomitant]
     Route: 065
     Dates: start: 20100128
  4. MOMETASONE FUROATE [Concomitant]
     Route: 065
     Dates: start: 20100128
  5. NICARDIPINE [Concomitant]
     Route: 065
     Dates: start: 20100831
  6. PARAMAX [Concomitant]
     Route: 065
     Dates: start: 20100128
  7. PIRITON [Concomitant]
     Route: 065
     Dates: start: 20100128
  8. PRAVASTATIN [Concomitant]
     Route: 065
     Dates: start: 20100128
  9. SERETIDE [Concomitant]
     Route: 065
     Dates: start: 20100128
  10. ARIMIDEX [Concomitant]
     Route: 065
     Dates: start: 20100831

REACTIONS (1)
  - Basal cell carcinoma [Recovered/Resolved]
